FAERS Safety Report 9490788 (Version 1)
Quarter: 2013Q3

REPORT INFORMATION
  Report Type: Spontaneous
  Country: US (occurrence: US)
  Receive Date: 20130830
  Receipt Date: 20130830
  Transmission Date: 20140515
  Serious: Yes (Hospitalization, Other)
  Sender: FDA-Public Use
  Company Number: US-SUN PHARMACEUTICAL INDUSTRIES LTD-2013SUN04531

PATIENT
  Age: 36 Year
  Sex: Female

DRUGS (2)
  1. PHENTERMINE HYDROCHLORIDE 37.5 MG TABLET [Suspect]
     Indication: WEIGHT DECREASED
     Dosage: QD
     Route: 065
  2. PHENTERMINE HYDROCHLORIDE 37.5 MG TABLET [Suspect]
     Dosage: 50 MG, TID
     Route: 048
     Dates: start: 20110223

REACTIONS (2)
  - Colitis ischaemic [Recovering/Resolving]
  - Incorrect drug administration duration [None]
